FAERS Safety Report 7316287-1 (Version None)
Quarter: 2011Q1

REPORT INFORMATION
  Report Type: 
  Country: None (occurrence: None)
  Receive Date: 20110225
  Receipt Date: 20110215
  Transmission Date: 20110831
  Serious: Yes (Hospitalization, Other)
  Sender: FDA-Public Use
  Company Number: US-CELGENEUS-163-21880-11021917

PATIENT
  Age: 67 Year
  Sex: Male

DRUGS (9)
  1. REVLIMID [Suspect]
     Indication: MYELOFIBROSIS
     Route: 048
     Dates: start: 20091001, end: 20110106
  2. QVAR 40 [Concomitant]
     Route: 065
  3. FLUOXETINE [Concomitant]
     Route: 065
  4. HYDROCODONE BITARTRATE + ACETAMINOPHEN [Concomitant]
     Route: 065
  5. OMEPRAZOLE [Concomitant]
     Route: 065
  6. IPRATROPIUM BROMIDE [Concomitant]
     Route: 065
  7. TERAZOSIN [Concomitant]
     Route: 065
  8. FLUTICASONE PROPIONATE [Concomitant]
     Route: 045
  9. PROAIR HFA [Concomitant]
     Route: 065

REACTIONS (5)
  - ATRIAL FIBRILLATION [None]
  - SUBCUTANEOUS EMPHYSEMA [None]
  - FALL [None]
  - PNEUMOTHORAX [None]
  - PANCYTOPENIA [None]
